FAERS Safety Report 6792443-6 (Version None)
Quarter: 2010Q2

REPORT INFORMATION
  Report Type: 
  Country: None (occurrence: None)
  Receive Date: 20100624
  Receipt Date: 20100622
  Transmission Date: 20101027
  Serious: Yes (Life-Threatening)
  Sender: FDA-Public Use
  Company Number: DE-MERCK-1005DEU00052

PATIENT
  Age: 11 Year
  Sex: Male
  Weight: 53 kg

DRUGS (1)
  1. SINGULAIR [Suspect]
     Indication: ASTHMA
     Route: 048
     Dates: start: 20100420, end: 20100513

REACTIONS (1)
  - SUICIDE ATTEMPT [None]
